FAERS Safety Report 11647563 (Version 1)
Quarter: 2015Q4

REPORT INFORMATION
  Report Type: Spontaneous
  Country: CH (occurrence: CH)
  Receive Date: 20151021
  Receipt Date: 20151021
  Transmission Date: 20160304
  Serious: Yes (Death)
  Sender: FDA-Public Use
  Company Number: CH-ROCHE-1646248

PATIENT
  Age: 1 Year
  Sex: Male
  Weight: 13 kg

DRUGS (21)
  1. NIFEDIPIN-RATIOPHARM 20 MG RETARDTABLETTEN [Suspect]
     Active Substance: NIFEDIPINE
     Indication: PRODUCT USED FOR UNKNOWN INDICATION
     Dosage: 2 MAL TAGLICH 15 MG
     Route: 048
     Dates: start: 20150617, end: 20150707
  2. ROCURONIUM [Concomitant]
     Active Substance: ROCURONIUM BROMIDE
     Dosage: SEIT DEM 15.6 IN DIVERSEN DOSIERUNGEN 0.6-1.2 MG/KG /H. ZWISCHENDURCH AUCH GESTOPPT.
     Route: 042
     Dates: start: 20150615, end: 20150630
  3. NERVIFENE [Concomitant]
     Active Substance: CHLORAL HYDRATE
     Dosage: 4 MAL TAGLICH 260 MG
     Route: 054
     Dates: start: 20150615, end: 20150716
  4. VANCOCIN [Concomitant]
     Active Substance: VANCOMYCIN HYDROCHLORIDE
     Dosage: 3 MAL TAGLICH 220 MG
     Route: 042
     Dates: start: 20150615, end: 20150623
  5. CELLCEPT [Suspect]
     Active Substance: MYCOPHENOLATE MOFETIL\MYCOPHENOLATE MOFETIL HYDROCHLORIDE
     Indication: PRODUCT USED FOR UNKNOWN INDICATION
     Dosage: 3 MAL TAGLICH 220 MG
     Route: 048
     Dates: start: 20150513, end: 20150715
  6. OMEZOL-MEPHA [Suspect]
     Active Substance: OMEPRAZOLE
     Indication: PRODUCT USED FOR UNKNOWN INDICATION
     Route: 042
     Dates: start: 20150615, end: 20150716
  7. TRACRIUM [Concomitant]
     Active Substance: ATRACURIUM BESYLATE
     Dosage: 3 MAL 13 MG
     Route: 042
     Dates: start: 20150626, end: 20150626
  8. VELCADE [Suspect]
     Active Substance: BORTEZOMIB
     Indication: PRODUCT USED FOR UNKNOWN INDICATION
     Dosage: 0.65 MG IV
     Route: 042
     Dates: start: 20150626, end: 20150626
  9. ZOVIRAX [Suspect]
     Active Substance: ACYCLOVIR
     Indication: PRODUCT USED FOR UNKNOWN INDICATION
     Route: 048
     Dates: start: 20150615, end: 20150716
  10. RENITEN SUBMITE [Suspect]
     Active Substance: ENALAPRIL MALEATE
     Indication: PRODUCT USED FOR UNKNOWN INDICATION
     Route: 065
     Dates: start: 20150702, end: 20150707
  11. VINCRISTIN [Concomitant]
     Active Substance: VINCRISTINE
     Route: 065
     Dates: start: 20150417, end: 20150604
  12. MORPHIN HCL [Concomitant]
     Active Substance: MORPHINE HYDROCHLORIDE
     Route: 065
     Dates: start: 20150615, end: 20150716
  13. PROPANOLOL [Concomitant]
     Active Substance: PROPRANOLOL HYDROCHLORIDE
     Dosage: 3 MAL TAGLICH 2.5 MG
     Route: 048
     Dates: start: 20150617, end: 20150716
  14. SPIRICORT [Concomitant]
     Active Substance: PREDNISOLONE
     Dosage: 15 MG TAGLICH
     Route: 048
     Dates: start: 20150130, end: 20150704
  15. ACTILYSE [Concomitant]
     Active Substance: ALTEPLASE
     Dosage: 1.2 MG 1 MAL
     Route: 042
     Dates: start: 20150625, end: 20150625
  16. AMPHO-MORONAL [Concomitant]
     Active Substance: AMPHOTERICIN B
     Route: 048
     Dates: start: 20150707, end: 20150716
  17. MABTHERA [Suspect]
     Active Substance: RITUXIMAB
     Indication: PRODUCT USED FOR UNKNOWN INDICATION
     Route: 041
     Dates: start: 20150428, end: 20150603
  18. RAPAMUNE [Suspect]
     Active Substance: SIROLIMUS
     Indication: PRODUCT USED FOR UNKNOWN INDICATION
     Route: 065
     Dates: start: 20150513, end: 20150704
  19. SPORANOX [Suspect]
     Active Substance: ITRACONAZOLE
     Indication: PRODUCT USED FOR UNKNOWN INDICATION
     Route: 048
     Dates: start: 20150222, end: 20150713
  20. NOPIL [Suspect]
     Active Substance: SULFAMETHOXAZOLE\TRIMETHOPRIM
     Indication: PRODUCT USED FOR UNKNOWN INDICATION
     Dosage: AN 3 AUFEINANDER FOLGENDEN TAGEN 2 MAL TAGLICH 180 MG
     Route: 048
     Dates: start: 20150615, end: 20150618
  21. DORMICUM (INJ) [Concomitant]
     Active Substance: MIDAZOLAM HYDROCHLORIDE
     Dosage: SEIT DEM 15.6 ALS DAUERTROPF 0.2-0.3 MG/KG/H
     Route: 042
     Dates: start: 20150615, end: 20150716

REACTIONS (25)
  - Liver disorder [Fatal]
  - Renal failure [Fatal]
  - Oedema peripheral [Fatal]
  - Microangiopathy [None]
  - Acidosis [None]
  - Evans syndrome [None]
  - Device related infection [None]
  - Vascular stenosis [None]
  - Hepatic failure [None]
  - Hypotension [None]
  - Oxygen saturation decreased [Fatal]
  - Weaning failure [None]
  - Mediastinal shift [None]
  - Immune thrombocytopenic purpura [None]
  - Septic shock [None]
  - Staphylococcus test positive [None]
  - Toxicity to various agents [None]
  - Hyperbilirubinaemia [Fatal]
  - Pneumonia [None]
  - Respiratory failure [None]
  - Bronchial obstruction [None]
  - Hyperkalaemia [None]
  - Transaminases increased [Fatal]
  - Bradycardia [None]
  - Aspiration [None]

NARRATIVE: CASE EVENT DATE: 20150614
